FAERS Safety Report 17023417 (Version 19)
Quarter: 2024Q3

REPORT INFORMATION
  Report Type: Report from Study
  Country: JP (occurrence: JP)
  Receive Date: 20191112
  Receipt Date: 20240919
  Transmission Date: 20241017
  Serious: Yes (Hospitalization, Other)
  Sender: BRISTOL MYERS SQUIBB
  Company Number: JP-BRISTOL-MYERS SQUIBB COMPANY-BMS-2019-096166

PATIENT
  Age: 40 Year
  Sex: Female
  Weight: 54 kg

DRUGS (9)
  1. YERVOY [Suspect]
     Active Substance: IPILIMUMAB
     Indication: Malignant melanoma
     Dosage: Q3W
     Route: 041
     Dates: start: 20190410, end: 20190430
  2. YERVOY [Suspect]
     Active Substance: IPILIMUMAB
     Route: 041
     Dates: start: 20190612, end: 20190612
  3. YERVOY [Suspect]
     Active Substance: IPILIMUMAB
     Route: 041
     Dates: start: 20190814, end: 20190814
  4. OPDIVO [Suspect]
     Active Substance: NIVOLUMAB
     Indication: Malignant melanoma
     Dosage: Q3W
     Route: 041
     Dates: start: 20190410, end: 20190430
  5. OPDIVO [Suspect]
     Active Substance: NIVOLUMAB
     Route: 041
     Dates: start: 20190612, end: 20190612
  6. OPDIVO [Suspect]
     Active Substance: NIVOLUMAB
     Route: 041
     Dates: start: 20190814, end: 20190814
  7. OPDIVO [Suspect]
     Active Substance: NIVOLUMAB
     Dosage: MONOTHERAPY
     Route: 041
  8. OPDIVO [Suspect]
     Active Substance: NIVOLUMAB
     Route: 041
     Dates: start: 2019, end: 2021
  9. OPDIVO [Suspect]
     Active Substance: NIVOLUMAB
     Route: 041
     Dates: start: 2021

REACTIONS (11)
  - Fulminant type 1 diabetes mellitus [Recovering/Resolving]
  - Secondary adrenocortical insufficiency [Recovering/Resolving]
  - Immune-mediated hypophysitis [Recovering/Resolving]
  - Central hypothyroidism [Recovering/Resolving]
  - Diabetic ketoacidosis [Unknown]
  - Pituitary enlargement [Unknown]
  - Adrenocorticotropic hormone deficiency [Unknown]
  - Thyroid stimulating hormone deficiency [Unknown]
  - Headache [Unknown]
  - Eosinophilia [Unknown]
  - Synovitis [Unknown]

NARRATIVE: CASE EVENT DATE: 20190101
